FAERS Safety Report 6259319-4 (Version None)
Quarter: 2009Q3

REPORT INFORMATION
  Report Type: 
  Country: None (occurrence: None)
  Receive Date: 20090702
  Receipt Date: 20090619
  Transmission Date: 20100115
  Serious: Yes (Death)
  Sender: FDA-Public Use
  Company Number: 2008AL010343

PATIENT
  Age: 63 Year
  Sex: Male

DRUGS (5)
  1. DIGOXIN [Suspect]
     Indication: HEART RATE IRREGULAR
     Dosage: 0.125MG, DAILY, PO
     Route: 048
     Dates: start: 19920101
  2. ADVAIR HFA [Concomitant]
  3. ALBUTEROL [Concomitant]
  4. POTASSIUM CL [Concomitant]
  5. WARFARIN SODIUM [Concomitant]

REACTIONS (12)
  - ACTIVITIES OF DAILY LIVING IMPAIRED [None]
  - ANOXIC ENCEPHALOPATHY [None]
  - BLOOD PRESSURE ABNORMAL [None]
  - DIZZINESS [None]
  - DYSPNOEA [None]
  - HEART RATE IRREGULAR [None]
  - INJURY [None]
  - NAUSEA [None]
  - PALPITATIONS [None]
  - RENAL FAILURE ACUTE [None]
  - VENTRICULAR FIBRILLATION [None]
  - VOMITING [None]
